FAERS Safety Report 13693969 (Version 1)
Quarter: 2017Q2

REPORT INFORMATION
  Report Type: Spontaneous
  Country: GR (occurrence: GR)
  Receive Date: 20170627
  Receipt Date: 20170627
  Transmission Date: 20170830
  Serious: Yes (Other)
  Sender: FDA-Public Use
  Company Number: GR-SA-2017SA110807

PATIENT
  Age: 75 Year
  Sex: Female

DRUGS (3)
  1. COAPROVEL [Suspect]
     Active Substance: HYDROCHLOROTHIAZIDE\IRBESARTAN
     Indication: HYPERTENSION
     Dosage: 150+12.5MG) X1/DAY
     Route: 048
  2. AMLOPEN [Concomitant]
     Route: 065
  3. XALATAN [Concomitant]
     Active Substance: LATANOPROST
     Route: 065

REACTIONS (1)
  - Ocular hypertension [Unknown]
